FAERS Safety Report 4435851-0 (Version None)
Quarter: 2004Q3

REPORT INFORMATION
  Report Type: 
  Country: None (occurrence: None)
  Receive Date: 20040726
  Receipt Date: 20040312
  Transmission Date: 20050211
  Serious: No
  Sender: FDA-Public Use
  Company Number: USA040260177

PATIENT
  Age: 74 Year
  Sex: Female
  Weight: 49 kg

DRUGS (4)
  1. FORTEO [Suspect]
     Indication: OSTEOPOROSIS
     Dosage: 20 UG/1 DAY
     Dates: start: 20030101
  2. CALCIUM [Concomitant]
  3. VITAMIN D [Concomitant]
  4. PAMIRONATE SODIUM [Concomitant]

REACTIONS (1)
  - THYROID NEOPLASM [None]
